FAERS Safety Report 23333353 (Version 2)
Quarter: 2024Q1

REPORT INFORMATION
  Report Type: Spontaneous
  Country: US (occurrence: US)
  Receive Date: 20231222
  Receipt Date: 20240305
  Transmission Date: 20240409
  Serious: No
  Sender: FDA-Public Use
  Company Number: US-BAUSCH-BL-2023-018900

PATIENT
  Sex: Female

DRUGS (1)
  1. JUBLIA [Suspect]
     Active Substance: EFINACONAZOLE
     Indication: Onychomycosis
     Route: 065
     Dates: start: 2023

REACTIONS (5)
  - Onychomycosis [Unknown]
  - Condition aggravated [Unknown]
  - Device difficult to use [Unknown]
  - Device delivery system issue [Unknown]
  - Product dose omission issue [Unknown]
